FAERS Safety Report 4327701-8 (Version None)
Quarter: 2004Q1

REPORT INFORMATION
  Report Type: 
  Country: None (occurrence: None)
  Receive Date: 20040325
  Receipt Date: 20040318
  Transmission Date: 20041129
  Serious: Yes (Death, Life-Threatening, Hospitalization)
  Sender: FDA-Public Use
  Company Number: 2004204401US

PATIENT
  Age: 79 Year
  Sex: Male
  Weight: 81.6 kg

DRUGS (13)
  1. CELEBREX [Suspect]
     Indication: PROSTATE CANCER
     Dosage: 400 MG, BID, ORAL
     Route: 048
     Dates: start: 20031216
  2. TAXOL [Suspect]
     Indication: PROSTATE CANCER
     Dosage: 90 MG/M2, CYCLIC, IV
     Route: 042
     Dates: start: 20031217
  3. TAXOL [Suspect]
  4. EMCYT [Suspect]
     Indication: PROSTATE CANCER
     Dosage: 400 MG, CYCLIC, ORAL
     Route: 048
     Dates: start: 20031216
  5. COUMADIN [Concomitant]
  6. DECADRON [Concomitant]
  7. BENADRYL [Concomitant]
  8. ZANTAC [Concomitant]
  9. ZOMETA [Concomitant]
  10. ATENOLOL [Concomitant]
  11. HYTRIN [Concomitant]
  12. PRAVACHOL [Concomitant]
  13. GLUCOSAMINE W/CHONDROITIN SULFATES (MANGANESE) [Concomitant]

REACTIONS (13)
  - ASTHENIA [None]
  - BLOOD PRESSURE DECREASED [None]
  - CARDIAC ARREST [None]
  - DIARRHOEA [None]
  - DYSPNOEA [None]
  - LOSS OF CONSCIOUSNESS [None]
  - OEDEMA PERIPHERAL [None]
  - PHARYNGOLARYNGEAL PAIN [None]
  - PULMONARY EMBOLISM [None]
  - RESPIRATORY DISTRESS [None]
  - RESTLESSNESS [None]
  - SEPSIS [None]
  - SYNCOPE [None]
